FAERS Safety Report 8795633 (Version 1)
Quarter: 2012Q4

REPORT INFORMATION
  Report Type: 
  Country: US (occurrence: US)
  Receive Date: 20120919
  Receipt Date: 20120919
  Transmission Date: 20130627
  Serious: Yes (Life-Threatening, Hospitalization)
  Sender: FDA-Public Use
  Company Number: US-MUTUAL PHARMACEUTICAL COMPANY, INC.-SFTM20120021

PATIENT
  Age: 72 Year
  Sex: Male

DRUGS (4)
  1. TRIMETHOPRIM-SULFAMETHOXAZOLE [Suspect]
     Indication: URINARY TRACT INFECTION
     Route: 065
  2. TRIMETHOPRIM-SULFAMETHOXAZOLE [Suspect]
     Indication: FEVER
  3. DIGITALIS [Concomitant]
     Indication: CONGESTIVE HEART FAILURE
     Route: 065
  4. DIURETICS [Concomitant]
     Indication: CONGESTIVE HEART FAILURE
     Route: 065

REACTIONS (7)
  - Electrocardiogram QT prolonged [Recovered/Resolved]
  - Ventricular tachycardia [Recovered/Resolved]
  - Ventricular fibrillation [Recovered/Resolved]
  - Hypotension [Recovered/Resolved]
  - Tremor [Recovered/Resolved]
  - Pyrexia [Recovered/Resolved]
  - Chills [Recovered/Resolved]
